FAERS Safety Report 9769135 (Version 1)
Quarter: 2013Q4

REPORT INFORMATION
  Report Type: Spontaneous
  Country: US (occurrence: None)
  Receive Date: 20131217
  Receipt Date: 20131217
  Transmission Date: 20140711
  Serious: Yes (Other)
  Sender: FDA-Public Use
  Company Number: None

PATIENT
  Age: 78 Year
  Sex: Female
  Weight: 68.04 kg

DRUGS (2)
  1. LEVOFLOXACIN [Suspect]
     Indication: SINUSITIS BACTERIAL
     Dosage: 1 TABLET ONCE DAILY TAKEN BY MOUTH
     Dates: start: 20130916, end: 20130925
  2. LEVOFLOXACIN [Suspect]
     Indication: PSEUDOMONAS INFECTION
     Dosage: 1 TABLET ONCE DAILY TAKEN BY MOUTH
     Dates: start: 20130916, end: 20130925

REACTIONS (4)
  - Musculoskeletal pain [None]
  - Pain in extremity [None]
  - Back pain [None]
  - Myalgia [None]
